APPROVED DRUG PRODUCT: THEOPHYL-SR
Active Ingredient: THEOPHYLLINE
Strength: 125MG
Dosage Form/Route: CAPSULE, EXTENDED RELEASE;ORAL
Application: A086480 | Product #001
Applicant: ORTHO MCNEIL PHARMACEUTICAL INC
Approved: Feb 8, 1985 | RLD: No | RS: No | Type: DISCN